FAERS Safety Report 20815531 (Version 1)
Quarter: 2022Q2

REPORT INFORMATION
  Report Type: Spontaneous
  Country: US (occurrence: US)
  Receive Date: 20220511
  Receipt Date: 20220511
  Transmission Date: 20220721
  Serious: Yes (Other)
  Sender: FDA-Public Use
  Company Number: US-LUPIN PHARMACEUTICALS INC.-2022-06843

PATIENT
  Age: 4 Decade
  Sex: Female

DRUGS (10)
  1. DULOXETINE [Suspect]
     Active Substance: DULOXETINE
     Indication: Sphincter of Oddi dysfunction
     Dosage: 60 MILLIGRAM, QD (CONTINUED POSTOPERATIVELY)
     Route: 065
  2. TRAMADOL [Suspect]
     Active Substance: TRAMADOL
     Indication: Sphincter of Oddi dysfunction
     Dosage: UNK
     Route: 065
  3. LORAZEPAM [Suspect]
     Active Substance: LORAZEPAM
     Indication: Sphincter of Oddi dysfunction
     Dosage: UNK
     Route: 065
  4. PREGABALIN [Suspect]
     Active Substance: PREGABALIN
     Indication: Sphincter of Oddi dysfunction
     Dosage: UNK
     Route: 065
  5. SUMATRIPTAN [Suspect]
     Active Substance: SUMATRIPTAN
     Indication: Sphincter of Oddi dysfunction
     Dosage: UNK
     Route: 065
  6. AMITRIPTYLINE [Suspect]
     Active Substance: AMITRIPTYLINE
     Indication: Sphincter of Oddi dysfunction
     Dosage: 35 MILLIGRAM, QD (ONTINUED POSTOPERATIVELY)
     Route: 065
  7. DOXEPIN [Suspect]
     Active Substance: DOXEPIN
     Indication: Sphincter of Oddi dysfunction
     Dosage: UNK
     Route: 065
  8. BACLOFEN [Suspect]
     Active Substance: BACLOFEN
     Indication: Sphincter of Oddi dysfunction
     Dosage: 10 MILLIGRAM, PRN (CONTINUED POSTOPERATIVELY)
     Route: 065
  9. TIZANIDINE [Suspect]
     Active Substance: TIZANIDINE
     Indication: Sphincter of Oddi dysfunction
     Dosage: UNK
     Route: 065
  10. LIDOCAINE [Suspect]
     Active Substance: LIDOCAINE
     Indication: Sphincter of Oddi dysfunction
     Dosage: UNK
     Route: 061

REACTIONS (2)
  - Drug ineffective for unapproved indication [Unknown]
  - Off label use [Unknown]
